FAERS Safety Report 7918633-4 (Version None)
Quarter: 2011Q4

REPORT INFORMATION
  Report Type: 
  Country: None (occurrence: None)
  Receive Date: 20111116
  Receipt Date: 20111101
  Transmission Date: 20120403
  Serious: Yes (Death, Hospitalization, Other)
  Sender: FDA-Public Use
  Company Number: US-WATSON-2011-19174

PATIENT
  Age: 38 Year
  Sex: Male

DRUGS (1)
  1. PREDNISONE [Suspect]
     Indication: CHRONIC HEPATITIS
     Dosage: 50 MG, DAILY
     Route: 065

REACTIONS (4)
  - LUNG ABSCESS [None]
  - EYE INFECTION INTRAOCULAR [None]
  - ABSCESS BACTERIAL [None]
  - NOCARDIA SEPSIS [None]
